FAERS Safety Report 8495079-4 (Version None)
Quarter: 2012Q3

REPORT INFORMATION
  Report Type: 
  Country: None (occurrence: None)
  Receive Date: 20120702
  Receipt Date: 20120702
  Transmission Date: 20120928
  Serious: Yes (Life-Threatening, Hospitalization, Disabling, Other)
  Sender: FDA-Public Use
  Company Number: None

PATIENT
  Age: 8 Year
  Sex: Male

DRUGS (1)
  1. DAYTRANA [Suspect]
     Indication: ATTENTION DEFICIT/HYPERACTIVITY DISORDER
     Dosage: 10MG PATCH 1X DAILY 1X DAILY OTHER
     Dates: start: 20120103, end: 20120627

REACTIONS (4)
  - DECREASED APPETITE [None]
  - SKIN IRRITATION [None]
  - GRAND MAL CONVULSION [None]
  - HEADACHE [None]
